FAERS Safety Report 18970050 (Version 2)
Quarter: 2021Q4

REPORT INFORMATION
  Report Type: Spontaneous
  Country: GB (occurrence: GB)
  Receive Date: 20210304
  Receipt Date: 20211026
  Transmission Date: 20220304
  Serious: Yes (Other)
  Sender: FDA-Public Use
  Company Number: None

PATIENT
  Age: 34 Year
  Sex: Female

DRUGS (2)
  1. NIQUITIN [Suspect]
     Active Substance: NICOTINE
     Indication: Ill-defined disorder
     Dosage: 21MG
     Route: 062
     Dates: start: 20210208, end: 20210217
  2. NIQUITIN [Suspect]
     Active Substance: NICOTINE
     Indication: Smoking cessation therapy

REACTIONS (6)
  - Cough [Unknown]
  - Chest pain [Unknown]
  - Illness [Unknown]
  - Oropharyngeal pain [Unknown]
  - Headache [Unknown]
  - Fatigue [Unknown]
